FAERS Safety Report 4641732-X (Version None)
Quarter: 2005Q2

REPORT INFORMATION
  Report Type: 
  Country: None (occurrence: None)
  Receive Date: 20050421
  Receipt Date: 20050406
  Transmission Date: 20051028
  Serious: Yes (Hospitalization, Other)
  Sender: FDA-Public Use
  Company Number: LOV-US-05-00200

PATIENT
  Age: 83 Year
  Sex: Male

DRUGS (10)
  1. ALTOPREV [Suspect]
     Indication: HYPERCHOLESTEROLAEMIA
     Dosage: 40 OR 60 MG PO QD
     Route: 048
  2. ASPIRIN [Concomitant]
  3. COLACE (DOCUSATE) [Concomitant]
  4. PEPCID [Concomitant]
  5. SYNTHROID [Concomitant]
  6. MULTI-VITAMIN [Concomitant]
  7. VICODIN [Concomitant]
  8. TYLENOL [Concomitant]
  9. TOPROLOL (METOPROLOL) [Concomitant]
  10. FUROSEMIDE [Concomitant]

REACTIONS (17)
  - ACTIVATED PARTIAL THROMBOPLASTIN TIME PROLONGED [None]
  - ALDOLASE INCREASED [None]
  - ATRIAL FIBRILLATION [None]
  - BLOOD ALBUMIN DECREASED [None]
  - BLOOD CREATINE PHOSPHOKINASE INCREASED [None]
  - BLOOD UREA INCREASED [None]
  - FALL [None]
  - HEPATIC FIBROSIS [None]
  - HEPATIC STEATOSIS [None]
  - HYPOKALAEMIA [None]
  - INTERNATIONAL NORMALISED RATIO INCREASED [None]
  - MYOPATHY [None]
  - PLEURAL EFFUSION [None]
  - PSYCHOTIC DISORDER [None]
  - RHABDOMYOLYSIS [None]
  - URINARY TRACT INFECTION [None]
  - WHITE BLOOD CELL COUNT INCREASED [None]
